FAERS Safety Report 25719504 (Version 1)
Quarter: 2025Q3

REPORT INFORMATION
  Report Type: Spontaneous
  Country: CN (occurrence: CN)
  Receive Date: 20250824
  Receipt Date: 20250824
  Transmission Date: 20251020
  Serious: Yes (Hospitalization)
  Sender: NOVARTIS
  Company Number: CN-002147023-NVSC2025CN129002

PATIENT
  Age: 56 Year
  Sex: Female
  Weight: 70 kg

DRUGS (3)
  1. CARBAMAZEPINE [Suspect]
     Active Substance: CARBAMAZEPINE
     Indication: Symptomatic treatment
     Dosage: 200.000 MG, QD
     Route: 048
     Dates: start: 20250715, end: 20250729
  2. CARBAMAZEPINE [Suspect]
     Active Substance: CARBAMAZEPINE
     Indication: Analgesic therapy
  3. CARBAMAZEPINE [Suspect]
     Active Substance: CARBAMAZEPINE
     Indication: Neuralgia

REACTIONS (8)
  - Rash [Recovering/Resolving]
  - Macule [Unknown]
  - Pruritus [Unknown]
  - Pyrexia [Unknown]
  - Drug eruption [Unknown]
  - White blood cell count decreased [Unknown]
  - Neutrophil count decreased [Unknown]
  - Platelet count decreased [Unknown]

NARRATIVE: CASE EVENT DATE: 20250729
